FAERS Safety Report 13553234 (Version 1)
Quarter: 2017Q2

REPORT INFORMATION
  Report Type: Spontaneous
  Country: US (occurrence: US)
  Receive Date: 20170517
  Receipt Date: 20170517
  Transmission Date: 20170830
  Serious: Yes (Hospitalization, Other)
  Sender: FDA-Public Use
  Company Number: US-ACCORD-051408

PATIENT
  Age: 75 Year
  Sex: Female

DRUGS (3)
  1. FLUOROURACIL. [Suspect]
     Active Substance: FLUOROURACIL
     Indication: VULVAR ADENOCARCINOMA
  2. METHOTREXATE. [Suspect]
     Active Substance: METHOTREXATE
     Indication: VULVAR ADENOCARCINOMA
  3. CYCLOPHOSPHAMIDE/CYCLOPHOSPHAMIDE MONOHYDRATE [Suspect]
     Active Substance: CYCLOPHOSPHAMIDE
     Indication: VULVAR ADENOCARCINOMA

REACTIONS (2)
  - Asthenia [Unknown]
  - Off label use [Unknown]
